FAERS Safety Report 19761327 (Version 1)
Quarter: 2021Q3

REPORT INFORMATION
  Report Type: Spontaneous
  Country: US (occurrence: US)
  Receive Date: 20210829
  Receipt Date: 20210829
  Transmission Date: 20211014
  Serious: Yes (Disabling, Other)
  Sender: FDA-Public Use
  Company Number: None

PATIENT
  Age: 59 Year
  Sex: Female
  Weight: 74.84 kg

DRUGS (1)
  1. GADOLINIUM [Suspect]
     Active Substance: GADOLINIUM

REACTIONS (7)
  - Gadolinium deposition disease [None]
  - Glucose tolerance impaired [None]
  - Hypersensitivity [None]
  - Fibrocystic breast disease [None]
  - Breast cancer [None]
  - Pruritus [None]
  - Multiple sclerosis [None]
